FAERS Safety Report 12731609 (Version 1)
Quarter: 2016Q3

REPORT INFORMATION
  Report Type: Spontaneous
  Country: US (occurrence: US)
  Receive Date: 20160912
  Receipt Date: 20160912
  Transmission Date: 20161109
  Serious: No
  Sender: FDA-Public Use
  Company Number: US-JNJFOC-20160711507

PATIENT
  Age: 61 Year
  Sex: Female
  Weight: 87.54 kg

DRUGS (1)
  1. XARELTO [Suspect]
     Active Substance: RIVAROXABAN
     Indication: THROMBOSIS
     Route: 048
     Dates: start: 20160706

REACTIONS (2)
  - Dyspnoea [Not Recovered/Not Resolved]
  - Chest discomfort [Unknown]

NARRATIVE: CASE EVENT DATE: 20160713
